FAERS Safety Report 4889595-1 (Version None)
Quarter: 2006Q1

REPORT INFORMATION
  Report Type: 
  Country: None (occurrence: None)
  Receive Date: 20060120
  Receipt Date: 20060120
  Transmission Date: 20060701
  Serious: Yes (Hospitalization)
  Sender: FDA-Public Use
  Company Number: None

PATIENT
  Sex: Female
  Weight: 109.77 kg

DRUGS (1)
  1. METHOTREXATE [Suspect]
     Indication: ACUTE LYMPHOCYTIC LEUKAEMIA
     Dosage: SEE IMAGE
     Dates: start: 20050530

REACTIONS (6)
  - BONE MARROW FAILURE [None]
  - DIARRHOEA [None]
  - FEBRILE NEUTROPENIA [None]
  - NASAL CONGESTION [None]
  - THROMBOCYTOPENIA [None]
  - VOMITING [None]
